FAERS Safety Report 7397552-9 (Version None)
Quarter: 2011Q2

REPORT INFORMATION
  Report Type: 
  Country: None (occurrence: None)
  Receive Date: 20110406
  Receipt Date: 20110330
  Transmission Date: 20111010
  Serious: Yes (Death, Hospitalization)
  Sender: FDA-Public Use
  Company Number: NL-PFIZER INC-2010148110

PATIENT
  Age: 63 Year
  Sex: Male

DRUGS (6)
  1. PARACETAMOL [Concomitant]
     Dosage: UNK
     Dates: start: 20100101
  2. FRAXODI [Concomitant]
     Dosage: 0.6 MG, 1X/DAY
     Route: 058
     Dates: start: 20100901, end: 20101102
  3. SUTENT [Suspect]
     Indication: METASTATIC RENAL CELL CARCINOMA
     Dosage: DOSE ACCORDING TO PROTOCOL
     Dates: start: 20100909, end: 20101102
  4. FENTANYL [Concomitant]
     Dosage: 12 UG/H, 1X/DAY
     Route: 062
     Dates: start: 20100101
  5. CINNARIZINE [Concomitant]
     Dosage: 75 MG, 1X/DAY
     Dates: start: 20101030
  6. METOCLOPRAMIDE [Concomitant]
     Dosage: UNK
     Dates: start: 20101008

REACTIONS (2)
  - CARDIAC MYXOMA [None]
  - CEREBRAL INFARCTION [None]
